FAERS Safety Report 5479070-8 (Version None)
Quarter: 2007Q4

REPORT INFORMATION
  Report Type: 
  Country: None (occurrence: None)
  Receive Date: 20071006
  Receipt Date: 20070925
  Transmission Date: 20080405
  Serious: Yes (Other)
  Sender: FDA-Public Use
  Company Number: US-PFIZER INC-2007081349

PATIENT

DRUGS (1)
  1. CHANTIX [Suspect]

REACTIONS (2)
  - AGGRESSION [None]
  - MANIA [None]
